FAERS Safety Report 10199933 (Version 1)
Quarter: 2014Q2

REPORT INFORMATION
  Report Type: Spontaneous
  Country: HR (occurrence: HR)
  Receive Date: 20140527
  Receipt Date: 20140527
  Transmission Date: 20141212
  Serious: Yes (Life-Threatening, Hospitalization, Other)
  Sender: FDA-Public Use
  Company Number: PHHY2014HR060005

PATIENT
  Age: 73 Year
  Sex: Male

DRUGS (10)
  1. MYCOPHENOLATE MOFETIL [Suspect]
     Indication: IMMUNOSUPPRESSION
     Dosage: 1 G, UNK
  2. MYCOPHENOLATE MOFETIL [Suspect]
     Dosage: 750 MG, BID
  3. MYCOPHENOLATE MOFETIL [Suspect]
     Dosage: 250 MG, BID
  4. DACLIZUMAB [Concomitant]
     Dosage: 75 MG, UNK
  5. PREDNISONE [Concomitant]
     Indication: IMMUNOSUPPRESSION
     Dosage: 500 MG, UNK
  6. PREDNISONE [Concomitant]
     Dosage: 20 MG, UNK
  7. PREDNISONE [Concomitant]
     Dosage: 8 MG, DAILY
  8. TACROLIMUS [Concomitant]
     Indication: IMMUNOSUPPRESSION
     Dosage: 3 MG, BID
  9. TACROLIMUS [Concomitant]
     Dosage: 2 MG, BID
  10. PANTOPRAZOLE [Concomitant]
     Dosage: 20 MG, QD

REACTIONS (7)
  - Gastrointestinal haemorrhage [Recovered/Resolved]
  - Haematochezia [Recovered/Resolved]
  - Hypovolaemic shock [Recovered/Resolved]
  - Diverticulum [Recovered/Resolved]
  - Anaemia [Recovered/Resolved]
  - Blood urea increased [Recovered/Resolved]
  - Blood creatinine increased [Recovered/Resolved]
